FAERS Safety Report 13576817 (Version 2)
Quarter: 2017Q2

REPORT INFORMATION
  Report Type: Spontaneous
  Country: AU (occurrence: AU)
  Receive Date: 20170524
  Receipt Date: 20170626
  Transmission Date: 20170830
  Serious: Yes (Other)
  Sender: FDA-Public Use
  Company Number: AU-PFIZER INC-2017218041

PATIENT
  Age: 25 Year
  Sex: Male

DRUGS (4)
  1. BLEOMYCIN SULFATE [Suspect]
     Active Substance: BLEOMYCIN SULFATE
     Indication: HODGKIN^S DISEASE
     Dosage: 10 U/M2, CYCLIC (AFTER FIVE OF A PLANNED SIX CYCLES)
  2. VINBLASTINE [Suspect]
     Active Substance: VINBLASTINE
     Indication: HODGKIN^S DISEASE
     Dosage: 6 MG/M2, CYCLIC (AFTER FIVE OF A PLANNED SIX CYCLES)
  3. DACARBAZINE. [Suspect]
     Active Substance: DACARBAZINE
     Indication: HODGKIN^S DISEASE
     Dosage: 375 MG/M2, CYCLIC  (AFTER FIVE OF A PLANNED SIX CYCLES)
  4. DOXORUBICIN HCL [Suspect]
     Active Substance: DOXORUBICIN HYDROCHLORIDE
     Indication: HODGKIN^S DISEASE
     Dosage: 25 MG/M2, CYCLIC (AFTER FIVE OF A PLANNED SIX CYCLES)

REACTIONS (1)
  - Ejection fraction decreased [Recovered/Resolved]
